FAERS Safety Report 9093332 (Version 1)
Quarter: 2013Q1

REPORT INFORMATION
  Report Type: Spontaneous
  Country: US (occurrence: None)
  Receive Date: 20130213
  Receipt Date: 20130213
  Transmission Date: 20140127
  Serious: Yes (Other)
  Sender: FDA-Public Use
  Company Number: None

PATIENT
  Age: 65 Year
  Sex: Male

DRUGS (17)
  1. XTANDI [Suspect]
     Indication: PROSTATE CANCER
     Route: 048
     Dates: start: 20121112, end: 20121212
  2. FENTANYL [Concomitant]
  3. MORPHINE SUL [Concomitant]
  4. LIDODERM [Concomitant]
  5. OMEPRAZOLE [Concomitant]
  6. PIOGLITAZONE [Concomitant]
  7. ASTEPRO [Concomitant]
  8. FUROSEMIDE [Concomitant]
  9. XTANOI [Concomitant]
  10. JANUVIA [Concomitant]
  11. PREDNISONE [Concomitant]
  12. DIOVAN [Concomitant]
  13. VYTORIN [Concomitant]
  14. PROPODYPHENE [Concomitant]
  15. LANTUS [Concomitant]
  16. ONDANSETRON [Concomitant]
  17. ZYTIGA [Concomitant]

REACTIONS (3)
  - Hot flush [None]
  - Chills [None]
  - Asthenia [None]
